FAERS Safety Report 23854812 (Version 1)
Quarter: 2024Q2

REPORT INFORMATION
  Report Type: Report from Study
  Country: CA (occurrence: CA)
  Receive Date: 20240514
  Receipt Date: 20240514
  Transmission Date: 20240716
  Serious: Yes (Other)
  Sender: FDA-Public Use
  Company Number: CA-AKCEA THERAPEUTICS, INC.-2024IS004428

PATIENT

DRUGS (5)
  1. TEGSEDI [Suspect]
     Active Substance: INOTERSEN SODIUM
     Indication: Hereditary neuropathic amyloidosis
     Dosage: 284 MILLIGRAM, QW
     Route: 058
     Dates: start: 20220929
  2. TEGSEDI [Suspect]
     Active Substance: INOTERSEN SODIUM
     Dosage: 284 MILLIGRAM, QW
     Route: 058
     Dates: start: 20220310
  3. TEGSEDI [Suspect]
     Active Substance: INOTERSEN SODIUM
     Dosage: 284 MILLIGRAM, QW
     Route: 058
     Dates: start: 20220119
  4. ROSUVASTATIN [Concomitant]
     Active Substance: ROSUVASTATIN
     Indication: Prostatomegaly
     Dosage: UNK, QD
     Route: 048
     Dates: start: 2017
  5. ELIQUIS [Concomitant]
     Active Substance: APIXABAN
     Indication: Anticoagulant therapy
     Dosage: 5 MILLIGRAM, BID
     Route: 048
     Dates: start: 202201

REACTIONS (22)
  - Renal impairment [Recovering/Resolving]
  - Confusional state [Not Recovered/Not Resolved]
  - Blood bilirubin increased [Unknown]
  - Bilirubin conjugated increased [Unknown]
  - Platelet morphology abnormal [Unknown]
  - Red blood cell morphology abnormal [Unknown]
  - Red blood cell burr cells present [Unknown]
  - Red blood cell elliptocytes present [Not Recovered/Not Resolved]
  - Red blood cell target cells present [Unknown]
  - Polychromasia [Unknown]
  - Anisocytosis [Unknown]
  - Anxiety [Unknown]
  - Blood bilirubin unconjugated increased [Not Recovered/Not Resolved]
  - Creatinine urine decreased [Recovered/Resolved]
  - Haematocrit increased [Recovered/Resolved]
  - Red cell distribution width increased [Recovered/Resolved]
  - Urine protein/creatinine ratio increased [Unknown]
  - Protein urine present [Unknown]
  - Peripheral swelling [Recovering/Resolving]
  - Injection site pain [Not Recovered/Not Resolved]
  - Contusion [Not Recovered/Not Resolved]
  - Platelet count decreased [Not Recovered/Not Resolved]

NARRATIVE: CASE EVENT DATE: 20220119
